FAERS Safety Report 25418759 (Version 1)
Quarter: 2025Q2

REPORT INFORMATION
  Report Type: Spontaneous
  Country: US (occurrence: None)
  Receive Date: 20250610
  Receipt Date: 20250610
  Transmission Date: 20250717
  Serious: Yes (Hospitalization)
  Sender: FDA-CTU
  Company Number: None

PATIENT
  Age: 77 Year
  Sex: Male

DRUGS (6)
  1. LENALIDOMIDE [Suspect]
     Active Substance: LENALIDOMIDE
     Indication: Plasma cell myeloma
     Dosage: FREQUENCY : DAILY;?
     Route: 048
     Dates: start: 20250516
  2. HUMALOG KWIK [Concomitant]
  3. INS DEGL FLX [Concomitant]
  4. LOSARTAN POTASSIUM [Concomitant]
     Active Substance: LOSARTAN POTASSIUM
  5. MEMANTINE TAB HCL [Concomitant]
  6. ONDANSETRON TAB [Concomitant]

REACTIONS (2)
  - Tooth extraction [None]
  - Post procedural infection [None]

NARRATIVE: CASE EVENT DATE: 20250607
